FAERS Safety Report 10520077 (Version 1)
Quarter: 2014Q4

REPORT INFORMATION
  Report Type: Spontaneous
  Country: US (occurrence: US)
  Receive Date: 20141015
  Receipt Date: 20141015
  Transmission Date: 20150528
  Serious: No
  Sender: FDA-Public Use
  Company Number: US-009507513-1410USA006638

PATIENT

DRUGS (2)
  1. REBETRON [Suspect]
     Active Substance: INTERFERON ALFA-2B\RIBAVIRIN
     Dosage: 3 INJECTIONS A WEEK
     Dates: start: 1999
  2. REBETRON [Suspect]
     Active Substance: INTERFERON ALFA-2B\RIBAVIRIN
     Dosage: SIX PILLS A DAY
     Route: 048
     Dates: start: 1999

REACTIONS (1)
  - Hepatitis C [Unknown]
